FAERS Safety Report 4779670-4 (Version None)
Quarter: 2005Q3

REPORT INFORMATION
  Report Type: 
  Country: None (occurrence: None)
  Receive Date: 20050914
  Receipt Date: 20040810
  Transmission Date: 20060218
  Serious: Yes (Death)
  Sender: FDA-Public Use
  Company Number: 163-20785-04060217

PATIENT
  Age: 66 Year
  Sex: Male

DRUGS (1)
  1. THALOMID [Suspect]
     Indication: MALIGNANT MELANOMA STAGE IV
     Dosage: 150 MG, DAILY, ORAL
     Route: 048
     Dates: start: 20040504, end: 20041002

REACTIONS (4)
  - MALAISE [None]
  - MEDICATION ERROR [None]
  - MYOCARDIAL INFARCTION [None]
  - SOMNOLENCE [None]
